FAERS Safety Report 7493324-5 (Version None)
Quarter: 2011Q2

REPORT INFORMATION
  Report Type: 
  Country: None (occurrence: None)
  Receive Date: 20110520
  Receipt Date: 20110422
  Transmission Date: 20111010
  Serious: Yes (Other)
  Sender: FDA-Public Use
  Company Number: US-BAYER-201034918NA

PATIENT
  Age: 22 Year
  Sex: Female
  Weight: 91 kg

DRUGS (11)
  1. BELLADONNA ALKALOIDS [Concomitant]
     Dosage: 1 TAB 3 TIMES A DAY AS NEEDED
     Route: 048
     Dates: start: 20081124
  2. YASMIN [Suspect]
     Indication: ACNE
  3. YAZ [Suspect]
     Indication: PREMENSTRUAL SYNDROME
  4. YAZ [Suspect]
     Indication: CONTRACEPTION
     Dosage: QD
     Route: 048
     Dates: start: 20080301, end: 20091001
  5. YASMIN [Suspect]
     Indication: PREMENSTRUAL SYNDROME
     Dosage: QD
     Route: 048
     Dates: start: 20080301, end: 20091101
  6. HYDROCODONE [Concomitant]
     Dosage: UNK UNK, PRN
     Route: 048
  7. YAZ [Suspect]
     Indication: ACNE
  8. YASMIN [Suspect]
     Indication: CONTRACEPTION
  9. SUCRALFATE [Concomitant]
     Dosage: 1 TAB 4 TIMES A DAY 1 HOUR BEFORE MEALS AND AT BEDTIME
     Route: 048
     Dates: start: 20081017
  10. ONDANSETRON [Concomitant]
     Dosage: 1 TAB TWICE A DAY AS NEEDED
     Route: 048
     Dates: start: 20081201
  11. PROMETHAZINE [Concomitant]
     Dosage: 1 TAB EVERY 4-6 HOURS
     Route: 048
     Dates: start: 20081213

REACTIONS (4)
  - DYSPEPSIA [None]
  - PROCEDURAL PAIN [None]
  - CHOLELITHIASIS [None]
  - CHOLECYSTITIS CHRONIC [None]
